FAERS Safety Report 10009716 (Version 2)
Quarter: 2014Q1

REPORT INFORMATION
  Report Type: Spontaneous
  Country: US (occurrence: US)
  Receive Date: 20140312
  Receipt Date: 20140312
  Transmission Date: 20141002
  Serious: Yes (Other)
  Sender: FDA-Public Use
  Company Number: US-INCYTE CORPORATION-2012IN000298

PATIENT
  Age: 73 Year
  Sex: Female

DRUGS (10)
  1. JAKAFI [Suspect]
     Indication: POLYCYTHAEMIA VERA
     Dosage: 20 MG, BID
     Route: 048
     Dates: start: 201202, end: 2012
  2. JAKAFI [Suspect]
     Indication: MYELOFIBROSIS
     Dosage: 10 MG, BID
     Route: 048
     Dates: start: 2012, end: 20120926
  3. HYDREA [Concomitant]
     Dosage: 500 MG, UNK
  4. CELEBREX [Concomitant]
  5. CALCIUM [Concomitant]
     Indication: SUPPLEMENTATION THERAPY
  6. VITAMIN B COMPLEX [Concomitant]
  7. CLARITIN [Concomitant]
  8. ASPIRIN [Concomitant]
     Dosage: 81 MG, UNK
  9. VITAMIN D [Concomitant]
     Dosage: UNK
  10. LORATADINE [Concomitant]
     Dosage: 81 MG, UNK

REACTIONS (1)
  - Haemoglobin decreased [Not Recovered/Not Resolved]
